FAERS Safety Report 18498354 (Version 2)
Quarter: 2020Q4

REPORT INFORMATION
  Report Type: Spontaneous
  Country: JP (occurrence: JP)
  Receive Date: 20201113
  Receipt Date: 20201214
  Transmission Date: 20210114
  Serious: Yes (Other)
  Sender: FDA-Public Use
  Company Number: JP-BEH-2020124684

PATIENT
  Age: 43 Year
  Sex: Male

DRUGS (1)
  1. HUMAN IMMUNOGLOBULIN (NC) (IMMUNOGLOBULIN HUMAN NORMAL) [Suspect]
     Active Substance: HUMAN IMMUNOGLOBULIN G
     Indication: SEPSIS
     Route: 065

REACTIONS (7)
  - Blood pressure decreased [Recovering/Resolving]
  - Cardio-respiratory arrest [Recovering/Resolving]
  - No adverse event [Unknown]
  - Discomfort [Recovering/Resolving]
  - Anaphylactic shock [Recovering/Resolving]
  - Depressed level of consciousness [Recovering/Resolving]
  - Off label use [Unknown]
